FAERS Safety Report 25451005 (Version 1)
Quarter: 2025Q2

REPORT INFORMATION
  Report Type: Spontaneous
  Country: GB (occurrence: GB)
  Receive Date: 20250618
  Receipt Date: 20250618
  Transmission Date: 20250717
  Serious: Yes (Hospitalization)
  Sender: NOVARTIS
  Company Number: GB-002147023-NVSC2025GB095842

PATIENT

DRUGS (1)
  1. ARTEMETHER\LUMEFANTRINE [Suspect]
     Active Substance: ARTEMETHER\LUMEFANTRINE
     Indication: Plasmodium falciparum infection
     Route: 065

REACTIONS (2)
  - Hyperparasitaemia [Unknown]
  - Incorrect dose administered [Unknown]
